FAERS Safety Report 15108563 (Version 3)
Quarter: 2018Q3

REPORT INFORMATION
  Report Type: Report from Study
  Country: CA (occurrence: CA)
  Receive Date: 20180705
  Receipt Date: 20180814
  Transmission Date: 20181010
  Serious: Yes (Other)
  Sender: FDA-Public Use
  Company Number: CA-ROCHE-2136059

PATIENT
  Age: 70 Year
  Sex: Female
  Weight: 81 kg

DRUGS (9)
  1. NORVASC [Concomitant]
     Active Substance: AMLODIPINE BESYLATE
  2. BENADRYL [Suspect]
     Active Substance: DIPHENHYDRAMINE HYDROCHLORIDE
     Indication: PRODUCT USED FOR UNKNOWN INDICATION
     Dosage: 50 MG IV IN 50 ML OF NACL 0.9% IN 15 MIN AT 16:45
     Route: 042
  3. BISOPROLOL [Concomitant]
     Active Substance: BISOPROLOL
  4. SYSTANE (HYPROMELLOSE 2910 (4000 MPA.S)) [Concomitant]
     Active Substance: HYPROMELLOSE 2910 (4000 MPA.S)
  5. ACTEMRA [Suspect]
     Active Substance: TOCILIZUMAB
     Indication: RHEUMATOID ARTHRITIS
     Route: 042
     Dates: start: 20180531, end: 20180531
  6. AMLODIPIN [Concomitant]
     Active Substance: AMLODIPINE BESYLATE
  7. SYNTHROID [Concomitant]
     Active Substance: LEVOTHYROXINE SODIUM
  8. DEXILANT [Concomitant]
     Active Substance: DEXLANSOPRAZOLE
  9. RITUXAN [Suspect]
     Active Substance: RITUXIMAB
     Indication: RHEUMATOID ARTHRITIS
     Dosage: FREQUENCY: DAY 1, 15
     Route: 042
     Dates: start: 20161101, end: 20171207

REACTIONS (10)
  - Cardiac disorder [Unknown]
  - Faeces soft [Not Recovered/Not Resolved]
  - Oropharyngeal pain [Unknown]
  - Ear disorder [Unknown]
  - Dyspnoea [Not Recovered/Not Resolved]
  - Abdominal pain upper [Unknown]
  - Infusion related reaction [Unknown]
  - Hypersensitivity [Unknown]
  - Blood pressure increased [Unknown]
  - Noninfective myringitis [Not Recovered/Not Resolved]

NARRATIVE: CASE EVENT DATE: 20180531
